FAERS Safety Report 5916490-9 (Version None)
Quarter: 2008Q4

REPORT INFORMATION
  Report Type: 
  Country: None (occurrence: None)
  Receive Date: 20081013
  Receipt Date: 20081003
  Transmission Date: 20090506
  Serious: Yes (Other)
  Sender: FDA-Public Use
  Company Number: A0744764A

PATIENT
  Age: 53 Year
  Sex: Male
  Weight: 62.7 kg

DRUGS (9)
  1. KIVEXA [Suspect]
     Indication: DRUG USE FOR UNKNOWN INDICATION
     Dosage: 1TAB PER DAY
     Route: 048
     Dates: start: 20071218, end: 20080226
  2. COMBIVIR [Concomitant]
  3. REYATAZ [Concomitant]
     Dosage: 300MG PER DAY
  4. RITONAVIR [Concomitant]
     Dosage: 100MG PER DAY
  5. METOPROLOL TARTRATE [Concomitant]
     Dosage: 2.5MG PER DAY
     Route: 065
  6. CRESTOR [Concomitant]
     Dosage: 20MG PER DAY
     Route: 065
  7. COVERSYL [Concomitant]
     Dosage: 2MG PER DAY
     Route: 065
  8. ASPIRIN [Concomitant]
     Dosage: 80MG PER DAY
     Route: 065
  9. NSAID [Concomitant]
     Route: 065

REACTIONS (15)
  - ABDOMINAL PAIN [None]
  - ABDOMINAL PAIN UPPER [None]
  - ALANINE AMINOTRANSFERASE INCREASED [None]
  - ASPARTATE AMINOTRANSFERASE INCREASED [None]
  - BLOOD ALKALINE PHOSPHATASE INCREASED [None]
  - BLOOD AMYLASE INCREASED [None]
  - DIARRHOEA [None]
  - DIZZINESS [None]
  - DRUG INTOLERANCE [None]
  - GAMMA-GLUTAMYLTRANSFERASE INCREASED [None]
  - GASTROINTESTINAL DISORDER [None]
  - HEPATITIS ACUTE [None]
  - MALAISE [None]
  - NAUSEA [None]
  - VOMITING [None]
